FAERS Safety Report 16356759 (Version 24)
Quarter: 2024Q3

REPORT INFORMATION
  Report Type: Report from Study
  Country: DE (occurrence: DE)
  Receive Date: 20190527
  Receipt Date: 20240905
  Transmission Date: 20241017
  Serious: Yes (Other)
  Sender: ROCHE
  Company Number: DE-ROCHE-2161436

PATIENT
  Age: 53 Year
  Sex: Female

DRUGS (7)
  1. OCREVUS [Suspect]
     Active Substance: OCRELIZUMAB
     Indication: Secondary progressive multiple sclerosis
     Dosage: 2ND ADMINISTRATION ON 11/APR/2018 600 MG FREQUENCY: 187 DAYS? ON 28/OCT/2019, HAD 5 TH INFUSION?178
     Route: 042
     Dates: start: 20180328
  2. OCREVUS [Suspect]
     Active Substance: OCRELIZUMAB
     Indication: Relapsing-remitting multiple sclerosis
     Route: 042
     Dates: start: 20181015
  3. OCREVUS [Suspect]
     Active Substance: OCRELIZUMAB
     Route: 042
     Dates: start: 20190415
  4. OCREVUS [Suspect]
     Active Substance: OCRELIZUMAB
     Route: 042
     Dates: start: 20200415
  5. OCREVUS [Suspect]
     Active Substance: OCRELIZUMAB
     Route: 042
     Dates: start: 20201022
  6. VITAMIN D NOS [Concomitant]
     Active Substance: CHOLECALCIFEROL\ERGOCALCIFEROL
  7. VITAMIN D3 [Concomitant]
     Active Substance: CHOLECALCIFEROL

REACTIONS (27)
  - Throat irritation [Recovered/Resolved]
  - Cough [Recovered/Resolved]
  - Dizziness [Recovered/Resolved]
  - Hypoaesthesia [Not Recovered/Not Resolved]
  - Paraesthesia [Recovering/Resolving]
  - Asthenia [Not Recovered/Not Resolved]
  - Dislocation of vertebra [Unknown]
  - Aphonia [Recovered/Resolved]
  - Fatigue [Recovering/Resolving]
  - Nasopharyngitis [Recovered/Resolved]
  - Oral herpes [Recovered/Resolved]
  - Cardiovascular disorder [Recovered/Resolved]
  - Gait disturbance [Not Recovered/Not Resolved]
  - Vomiting [Recovered/Resolved]
  - Dental fistula [Recovered/Resolved]
  - Muscular weakness [Recovering/Resolving]
  - Dyspnoea [Recovering/Resolving]
  - COVID-19 [Recovered/Resolved]
  - Multiple sclerosis [Recovered/Resolved]
  - Magnetic resonance imaging spinal abnormal [Recovering/Resolving]
  - Blood immunoglobulin G decreased [Not Recovered/Not Resolved]
  - B-lymphocyte count decreased [Recovered/Resolved]
  - Balance disorder [Recovering/Resolving]
  - Perioral dermatitis [Recovering/Resolving]
  - Rash [Recovering/Resolving]
  - Oral mucosal blistering [Recovering/Resolving]
  - Blister [Recovering/Resolving]

NARRATIVE: CASE EVENT DATE: 20180328
